FAERS Safety Report 5510912-3 (Version None)
Quarter: 2007Q4

REPORT INFORMATION
  Report Type: 
  Country: None (occurrence: None)
  Receive Date: 20071031
  Receipt Date: 20071022
  Transmission Date: 20080405
  Serious: Yes (Other)
  Sender: FDA-Public Use
  Company Number: AEUSA200700251

PATIENT
  Age: 10 Year
  Sex: Female
  Weight: 38.5557 kg

DRUGS (14)
  1. GAMUNEX [Suspect]
     Indication: IMMUNODEFICIENCY COMMON VARIABLE
     Dosage: 16 GM; Q3W; IV
     Route: 042
     Dates: start: 20070301
  2. GAMUNEX [Suspect]
  3. GAMUNEX [Suspect]
  4. GAMUNEX [Suspect]
  5. GAMUNEX [Suspect]
  6. GAMUNEX [Suspect]
  7. GAMUNEX [Suspect]
  8. GAMUNEX [Suspect]
  9. GAMUNEX [Suspect]
  10. STIMATE [Concomitant]
  11. TYLENOL [Concomitant]
  12. HYDROCORTISONE [Concomitant]
  13. AEROKID [Concomitant]
  14. BENADRYL [Concomitant]

REACTIONS (1)
  - HEPATITIS A ANTIBODY POSITIVE [None]
